FAERS Safety Report 9068867 (Version 2)
Quarter: 2013Q1

REPORT INFORMATION
  Report Type: Spontaneous
  Country: VE (occurrence: VE)
  Receive Date: 20130215
  Receipt Date: 20130221
  Transmission Date: 20140127
  Serious: Yes (Other)
  Sender: FDA-Public Use
  Company Number: VE-PFIZER INC-2013058902

PATIENT
  Age: 72 Year
  Sex: Male

DRUGS (1)
  1. LYRICA [Suspect]
     Dosage: UNK MG, 1X/DAY
     Route: 048
     Dates: start: 201210, end: 201211

REACTIONS (3)
  - Hypertension [Recovered/Resolved]
  - Cerebral infarction [Recovered/Resolved]
  - Peripheral vascular disorder [Recovered/Resolved]
